FAERS Safety Report 7396239-6 (Version None)
Quarter: 2011Q2

REPORT INFORMATION
  Report Type: 
  Country: None (occurrence: None)
  Receive Date: 20110406
  Receipt Date: 20110208
  Transmission Date: 20111010
  Serious: Yes (Hospitalization, Other)
  Sender: FDA-Public Use
  Company Number: FR-JNJFOC-20110401241

PATIENT
  Sex: Female

DRUGS (17)
  1. TOPALGIC [Suspect]
     Indication: PRODUCT USED FOR UNKNOWN INDICATION
     Route: 048
  2. GLUCOPHAGE [Concomitant]
  3. STILNOX [Concomitant]
  4. LEXOMIL [Concomitant]
  5. ANALGESICS [Concomitant]
     Dosage: START DATE: 2010
  6. DI-ANTALVIC [Concomitant]
  7. FOSAMAX [Concomitant]
  8. ANTIINFLAMMATORY/ANTIRHEUMATIC PRODUCTS [Concomitant]
     Dosage: START DATE: 2010
  9. VIRAMUNE [Concomitant]
  10. TENOFOVIR [Concomitant]
  11. TOPALGIC [Suspect]
     Route: 048
  12. ELISOR [Concomitant]
  13. LEVOTHYROX [Concomitant]
  14. EMTRICITABINE/TENOFOVIR DISOPROXIL FUMARATE [Concomitant]
  15. PIOGLITAZONE [Concomitant]
  16. RIVOTRIL [Concomitant]
  17. RALTEGRAVIR [Concomitant]

REACTIONS (4)
  - VOMITING [None]
  - DECREASED APPETITE [None]
  - RENAL FAILURE [None]
  - NAUSEA [None]
